FAERS Safety Report 19427083 (Version 3)
Quarter: 2021Q3

REPORT INFORMATION
  Report Type: Spontaneous
  Country: BR (occurrence: BR)
  Receive Date: 20210616
  Receipt Date: 20210731
  Transmission Date: 20211014
  Serious: Yes (Death, Other)
  Sender: FDA-Public Use
  Company Number: BR-ROCHE-2849579

PATIENT
  Age: 41 Year
  Sex: Male
  Weight: 82 kg

DRUGS (18)
  1. ACTEMRA [Suspect]
     Active Substance: TOCILIZUMAB
     Indication: COVID-19
     Route: 042
     Dates: start: 20210526
  2. NOREPINEPHRINE. [Concomitant]
     Active Substance: NOREPINEPHRINE
  3. PREDNISONE. [Concomitant]
     Active Substance: PREDNISONE
  4. DORMONID [Concomitant]
     Active Substance: MIDAZOLAM MALEATE
  5. DEXAMETHASONE. [Concomitant]
     Active Substance: DEXAMETHASONE
     Indication: PREMEDICATION
     Route: 042
  6. CEFEPIME [Concomitant]
     Active Substance: CEFEPIME HYDROCHLORIDE
     Dates: start: 20210526
  7. DORMONID [Concomitant]
     Active Substance: MIDAZOLAM MALEATE
     Indication: SEDATION
  8. AZITHROMYCIN ANHYDROUS. [Concomitant]
     Active Substance: AZITHROMYCIN ANHYDROUS
     Dosage: FOR 5 DAYS
  9. MOXIFLOXACIN. [Concomitant]
     Active Substance: MOXIFLOXACIN
     Dates: start: 20210525
  10. DISODIUM PHOSPHATE [Concomitant]
     Indication: PREMEDICATION
     Route: 042
  11. IVERMECTIN. [Concomitant]
     Active Substance: IVERMECTIN
  12. DIPYRONE [Concomitant]
     Active Substance: DIPYRONE
  13. AVALOX [Concomitant]
     Active Substance: MOXIFLOXACIN HYDROCHLORIDE
  14. KETAMINE [Concomitant]
     Active Substance: KETAMINE
     Indication: SEDATION
  15. ROCURONIUM [Concomitant]
     Active Substance: ROCURONIUM BROMIDE
  16. SOLU?MEDROL [Concomitant]
     Active Substance: METHYLPREDNISOLONE SODIUM SUCCINATE
  17. FENTANYL. [Concomitant]
     Active Substance: FENTANYL
     Indication: SEDATION
  18. ROCEPHIN [Concomitant]
     Active Substance: CEFTRIAXONE SODIUM

REACTIONS (10)
  - Cardiac arrest [Fatal]
  - Bradyarrhythmia [Fatal]
  - Sudden death [Fatal]
  - Pulseless electrical activity [Unknown]
  - Shock [Unknown]
  - Hypotension [Unknown]
  - Off label use [Unknown]
  - Hypoxia [Unknown]
  - Pyrexia [Unknown]
  - Tachycardia [Unknown]

NARRATIVE: CASE EVENT DATE: 20210531
